FAERS Safety Report 16257841 (Version 2)
Quarter: 2019Q3

REPORT INFORMATION
  Report Type: Spontaneous
  Country: JP (occurrence: JP)
  Receive Date: 20190430
  Receipt Date: 20190722
  Transmission Date: 20191004
  Serious: Yes (Death)
  Sender: FDA-Public Use
  Company Number: JP-JNJFOC-20190441920

PATIENT
  Age: 9 Decade
  Sex: Female

DRUGS (3)
  1. RIVAROXABAN [Suspect]
     Active Substance: RIVAROXABAN
     Indication: ATRIAL FIBRILLATION
     Dosage: 10 MG, QD
     Route: 048
     Dates: start: 20141108, end: 20190311
  2. BAYASPIRIN [Suspect]
     Active Substance: ASPIRIN
     Indication: CORONARY ANGIOPLASTY
     Dosage: DAILY DOSE 100 MG
     Route: 048
     Dates: start: 20190225, end: 20190311
  3. PRASUGREL HYDROCHLORIDE [Suspect]
     Active Substance: PRASUGREL HYDROCHLORIDE
     Indication: CORONARY ANGIOPLASTY
     Dosage: DAILY DOSE 3.75 MG
     Route: 065
     Dates: start: 20190225, end: 20190311

REACTIONS (3)
  - Labelled drug-drug interaction medication error [Fatal]
  - Off label use [Unknown]
  - Cerebellar haemorrhage [Fatal]

NARRATIVE: CASE EVENT DATE: 20141108
